FAERS Safety Report 19990914 (Version 1)
Quarter: 2021Q4

REPORT INFORMATION
  Report Type: Spontaneous
  Country: US (occurrence: US)
  Receive Date: 20211022
  Receipt Date: 20211022
  Transmission Date: 20220303
  Serious: Yes (Hospitalization)
  Sender: FDA-Public Use
  Company Number: None

PATIENT
  Sex: Male

DRUGS (3)
  1. SILDENAFIL [Suspect]
     Active Substance: SILDENAFIL
     Indication: Pulmonary arterial hypertension
     Route: 048
     Dates: start: 20210216
  2. SILDENAFIL [Suspect]
     Active Substance: SILDENAFIL
     Route: 048
  3. DOFETILIDE [Concomitant]
     Active Substance: DOFETILIDE

REACTIONS (1)
  - Pneumonia bacterial [None]
